FAERS Safety Report 25845507 (Version 1)
Quarter: 2025Q3

REPORT INFORMATION
  Report Type: Spontaneous
  Country: GB (occurrence: GB)
  Receive Date: 20250925
  Receipt Date: 20250925
  Transmission Date: 20251020
  Serious: Yes (Disabling)
  Sender: AUROBINDO
  Company Number: GB-MHRA-TPP11345737C5406911YC1757590319713

PATIENT
  Age: 69 Year
  Sex: Female
  Weight: 57 kg

DRUGS (17)
  1. MIRTAZAPINE [Suspect]
     Active Substance: MIRTAZAPINE
     Indication: Depressed mood
     Dosage: 15 MILLIGRAM, ONCE A DAY (TAKE ONCE DAILY AT NIGHT)
     Route: 065
     Dates: start: 20250807, end: 20250904
  2. FLUCLOXACILLIN [Concomitant]
     Active Substance: FLUCLOXACILLIN
     Indication: Ill-defined disorder
     Dosage: 1 DOSAGE FORM, FOUR TIMES/DAY (TAKE ONE 4 TIMES/DAY FOR 5 DAYS)
     Route: 065
     Dates: start: 20250702, end: 20250707
  3. Activa [Concomitant]
     Indication: Ill-defined disorder
     Route: 065
     Dates: start: 20240705
  4. CODEINE PHOSPHATE [Concomitant]
     Active Substance: CODEINE PHOSPHATE
     Indication: Ill-defined disorder
     Route: 065
     Dates: start: 20250911
  5. DOCUSATE SODIUM [Concomitant]
     Active Substance: DOCUSATE SODIUM
     Indication: Ill-defined disorder
     Dosage: 1 DOSAGE FORM, FOUR TIMES/DAY (TAKE UPTO ONE TABLET 4 TIMES A DAY WHEN REQUIRE...)
     Route: 065
     Dates: start: 20250911
  6. TRAZODONE [Concomitant]
     Active Substance: TRAZODONE HYDROCHLORIDE
     Indication: Ill-defined disorder
     Route: 065
     Dates: start: 20250911
  7. AMITRIPTYLINE HYDROCHLORIDE [Concomitant]
     Active Substance: AMITRIPTYLINE HYDROCHLORIDE
     Indication: Ill-defined disorder
     Route: 065
     Dates: start: 20230204
  8. TIOTROPIUM BROMIDE [Concomitant]
     Active Substance: TIOTROPIUM BROMIDE
     Indication: Ill-defined disorder
     Dosage: 1 DOSAGE FORM, ONCE A DAY (INHALE 1 DOSE ONCE DAILY)
     Route: 065
     Dates: start: 20230204
  9. FEXOFENADINE [Concomitant]
     Active Substance: FEXOFENADINE HYDROCHLORIDE
     Indication: Ill-defined disorder
     Route: 065
     Dates: start: 20230204
  10. RAMIPRIL [Concomitant]
     Active Substance: RAMIPRIL
     Indication: Ill-defined disorder
     Route: 065
     Dates: start: 20230204
  11. DIBUCAINE HYDROCHLORIDE\PREDNISOLONE [Concomitant]
     Active Substance: DIBUCAINE HYDROCHLORIDE\PREDNISOLONE
     Indication: Ill-defined disorder
     Dosage: 1 DOSAGE FORM, TWO TIMES A DAY (TO BE TAKEN TWICE DAILY WHEN REQUIRED)
     Route: 065
     Dates: start: 20230204
  12. TEMAZEPAM [Concomitant]
     Active Substance: TEMAZEPAM
     Indication: Ill-defined disorder
     Route: 065
     Dates: start: 20230204
  13. VENTOLIN [Concomitant]
     Active Substance: ALBUTEROL SULFATE
     Indication: Ill-defined disorder
     Route: 065
     Dates: start: 20230204
  14. METHENAMINE HIPPURATE [Concomitant]
     Active Substance: METHENAMINE HIPPURATE
     Indication: Ill-defined disorder
     Dosage: 1 DOSAGE FORM, TWO TIMES A DAY (TAKE ONE TWICE DAILY AS PER UROLOGY ADVICE.)
     Route: 065
     Dates: start: 20230519
  15. CHLORPHENIRAMINE MALEATE [Concomitant]
     Active Substance: CHLORPHENIRAMINE MALEATE
     Indication: Ill-defined disorder
     Route: 065
     Dates: start: 20241106
  16. OMEPRAZOLE [Concomitant]
     Active Substance: OMEPRAZOLE
     Indication: Ill-defined disorder
     Route: 065
     Dates: start: 20241219
  17. ESTRIOL [Concomitant]
     Active Substance: ESTRIOL
     Indication: Ill-defined disorder
     Route: 065
     Dates: start: 20250528

REACTIONS (4)
  - Insomnia [Recovered/Resolved]
  - Restless legs syndrome [Recovered/Resolved]
  - Paraesthesia [Recovered/Resolved]
  - Somnolence [Recovered/Resolved]

NARRATIVE: CASE EVENT DATE: 20250809
